FAERS Safety Report 5378591-6 (Version None)
Quarter: 2007Q3

REPORT INFORMATION
  Report Type: 
  Country: None (occurrence: None)
  Receive Date: 20070705
  Receipt Date: 20070627
  Transmission Date: 20080115
  Serious: Yes (Hospitalization)
  Sender: FDA-Public Use
  Company Number: US-BAXTER-2007BH005883

PATIENT
  Age: 55 Year
  Sex: Female

DRUGS (2)
  1. DIANEAL [Suspect]
     Indication: RENAL FAILURE CHRONIC
     Route: 033
     Dates: start: 20070212, end: 20070618
  2. DIANEAL [Suspect]
     Indication: RENAL FAILURE CHRONIC
     Route: 033
     Dates: start: 20070212, end: 20070618

REACTIONS (5)
  - CONSTIPATION [None]
  - DIAPHRAGMATIC RUPTURE [None]
  - PERITONEAL PERFORATION [None]
  - PERITONITIS BACTERIAL [None]
  - PLEURAL EFFUSION [None]
